FAERS Safety Report 10156555 (Version 2)
Quarter: 2014Q2

REPORT INFORMATION
  Report Type: Report from Study
  Country: CN (occurrence: CN)
  Receive Date: 20140507
  Receipt Date: 20140512
  Transmission Date: 20141212
  Serious: Yes (Hospitalization)
  Sender: FDA-Public Use
  Company Number: CN-ROCHE-1397039

PATIENT
  Age: 55 Year
  Sex: Female

DRUGS (2)
  1. HERCEPTIN [Suspect]
     Indication: BREAST CANCER
     Route: 065
     Dates: start: 201301, end: 201404
  2. PERTUZUMAB [Suspect]
     Indication: BREAST CANCER
     Route: 065
     Dates: start: 201301, end: 201404

REACTIONS (1)
  - Leukaemia [Not Recovered/Not Resolved]
